FAERS Safety Report 7681498-2 (Version None)
Quarter: 2011Q3

REPORT INFORMATION
  Report Type: 
  Country: None (occurrence: None)
  Receive Date: 20110812
  Receipt Date: 20110803
  Transmission Date: 20111222
  Serious: Yes (Hospitalization, Other)
  Sender: FDA-Public Use
  Company Number: PHHY2011BR70770

PATIENT
  Age: 61 Year
  Sex: Female
  Weight: 59 kg

DRUGS (7)
  1. DIOVAN HCT [Concomitant]
     Indication: HYPERTENSION
     Dosage: 1 DF, QD
  2. SIMVASTATIN [Concomitant]
     Indication: BLOOD CHOLESTEROL INCREASED
     Dosage: 1 DF, UNK
  3. EPOETIN ALFA [Concomitant]
     Indication: ANAEMIA
     Dosage: UNK UKN, UNK
  4. EXELON [Suspect]
     Indication: DEMENTIA ALZHEIMER'S TYPE
     Dosage: 9 MG PATCH
  5. METOPROLOL TARTRATE [Concomitant]
     Indication: HYPERTENSION
     Dosage: 1 DF, QD
  6. PHENYTOIN [Concomitant]
     Indication: CONVULSION
     Dosage: 1 DF, Q12H
  7. DEPAKENE [Concomitant]
     Indication: CONVULSION
     Dosage: 1 DF, QD

REACTIONS (4)
  - EATING DISORDER [None]
  - AGITATION [None]
  - DISORIENTATION [None]
  - ANAEMIA [None]
